FAERS Safety Report 20364915 (Version 2)
Quarter: 2022Q1

REPORT INFORMATION
  Report Type: Spontaneous
  Country: US (occurrence: US)
  Receive Date: 20220122
  Receipt Date: 20220216
  Transmission Date: 20220423
  Serious: Yes (Other)
  Sender: FDA-Public Use
  Company Number: US-CELLTRION INC.-2022US000472

PATIENT

DRUGS (1)
  1. INFLECTRA [Suspect]
     Active Substance: INFLIXIMAB-DYYB
     Indication: Crohn^s disease
     Dosage: 10 MG/KG EVERY 6 WEEKS
     Route: 042
     Dates: end: 20211126

REACTIONS (6)
  - Crohn^s disease [Unknown]
  - Psoriatic arthropathy [Unknown]
  - Arthralgia [Unknown]
  - Product dose omission issue [Not Recovered/Not Resolved]
  - Off label use [Unknown]
  - Overdose [Unknown]
